FAERS Safety Report 22129838 (Version 2)
Quarter: 2023Q2

REPORT INFORMATION
  Report Type: Report from Study
  Country: US (occurrence: US)
  Receive Date: 20230323
  Receipt Date: 20230524
  Transmission Date: 20230721
  Serious: Yes (Other)
  Sender: FDA-Public Use
  Company Number: US-002147023-NVSC2023US062303

PATIENT
  Sex: Female

DRUGS (4)
  1. ENTRESTO [Suspect]
     Active Substance: SACUBITRIL\VALSARTAN
     Indication: Product used for unknown indication
     Dosage: 2 DOSAGE FORM, BID
     Route: 065
  2. ENTRESTO [Suspect]
     Active Substance: SACUBITRIL\VALSARTAN
     Dosage: 3 DOSAGE FORM (49/51 MG 1 TABLET AM, 2 TABLETS PM)
     Route: 065
  3. ENTRESTO [Suspect]
     Active Substance: SACUBITRIL\VALSARTAN
     Dosage: UNK, QD
     Route: 065
  4. ENTRESTO [Suspect]
     Active Substance: SACUBITRIL\VALSARTAN
     Dosage: 1 DOSAGE FORM, BID
     Route: 065

REACTIONS (13)
  - Cardiomyopathy [Unknown]
  - Barrett^s oesophagus [Unknown]
  - Renal cyst [Unknown]
  - Renal pain [Recovering/Resolving]
  - Back pain [Recovering/Resolving]
  - Blood glucose abnormal [Unknown]
  - Oedema [Unknown]
  - Oropharyngeal discomfort [Unknown]
  - Stress [Unknown]
  - Feeling abnormal [Unknown]
  - Blood bilirubin abnormal [Unknown]
  - Rash [Recovered/Resolved]
  - Inappropriate schedule of product administration [Unknown]
